FAERS Safety Report 14199019 (Version 1)
Quarter: 2017Q4

REPORT INFORMATION
  Report Type: Spontaneous
  Country: DE (occurrence: DE)
  Receive Date: 20171117
  Receipt Date: 20171117
  Transmission Date: 20180321
  Serious: Yes (Hospitalization)
  Sender: FDA-Public Use
  Company Number: DE-ACTELION-A-CH2017-162552

PATIENT
  Age: 17 Year
  Sex: Female

DRUGS (3)
  1. MELPERON [Concomitant]
     Active Substance: MELPERONE
     Dosage: 25 MG, TID
     Route: 048
  2. ZAVESCA [Suspect]
     Active Substance: MIGLUSTAT
     Indication: NIEMANN-PICK DISEASE
     Dosage: 200 MG, TID
     Route: 048
  3. QUETIAPIN [Concomitant]
     Active Substance: QUETIAPINE
     Dosage: 700 MG, UNK

REACTIONS (6)
  - Delusion [Recovered/Resolved]
  - Aggression [Recovered/Resolved]
  - Treatment noncompliance [Unknown]
  - Hallucination [Recovered/Resolved]
  - Psychotic behaviour [Recovered/Resolved]
  - Psychotic disorder [Recovered/Resolved]
